FAERS Safety Report 9375298 (Version 1)
Quarter: 2013Q2

REPORT INFORMATION
  Report Type: Spontaneous
  Country: CA (occurrence: CA)
  Receive Date: 20130628
  Receipt Date: 20130628
  Transmission Date: 20140414
  Serious: Yes (Death)
  Sender: FDA-Public Use
  Company Number: CA-UCBSA-089732

PATIENT
  Age: 66 Year
  Sex: Male

DRUGS (4)
  1. VIMPAT [Suspect]
     Route: 048
  2. FRISIUM [Concomitant]
     Dosage: 10 MG
  3. LAMOTRIGINE [Concomitant]
  4. GLEEVEC [Concomitant]

REACTIONS (1)
  - Completed suicide [Fatal]
